FAERS Safety Report 10063394 (Version 4)
Quarter: 2015Q3

REPORT INFORMATION
  Report Type: Spontaneous
  Country: US (occurrence: US)
  Receive Date: 20140407
  Receipt Date: 20150714
  Transmission Date: 20151125
  Serious: Yes (Life-Threatening, Hospitalization)
  Sender: FDA-Public Use
  Company Number: US-LUNDBECK-DKLU1086393

PATIENT
  Age: 5 Year
  Sex: Female
  Weight: 22 kg

DRUGS (7)
  1. ONFI [Suspect]
     Active Substance: CLOBAZAM
     Route: 065
     Dates: start: 20121030, end: 20121115
  2. ONFI [Suspect]
     Active Substance: CLOBAZAM
     Route: 065
  3. ONFI [Suspect]
     Active Substance: CLOBAZAM
     Route: 065
  4. ONFI [Suspect]
     Active Substance: CLOBAZAM
     Indication: EPILEPSY
     Route: 065
  5. ONFI [Suspect]
     Active Substance: CLOBAZAM
     Route: 065
  6. ONFI [Suspect]
     Active Substance: CLOBAZAM
     Route: 065
  7. ONFI [Suspect]
     Active Substance: CLOBAZAM
     Route: 065

REACTIONS (5)
  - Sedation [Unknown]
  - Fatigue [Recovered/Resolved]
  - Hypothermia [Recovered/Resolved]
  - Encephalopathy [Recovering/Resolving]
  - Bradycardia [Recovered/Resolved]

NARRATIVE: CASE EVENT DATE: 20121115
